FAERS Safety Report 4533454-0 (Version None)
Quarter: 2004Q4

REPORT INFORMATION
  Report Type: 
  Country: None (occurrence: None)
  Receive Date: 20041210
  Receipt Date: 20031103
  Transmission Date: 20050328
  Serious: Yes (Hospitalization)
  Sender: FDA-Public Use
  Company Number: RS003983-USA

PATIENT
  Age: 52 Year

DRUGS (3)
  1. ACIPHEX [Suspect]
     Indication: GASTROINTESTINAL ULCER HAEMORRHAGE
     Dosage: 20 MG, ORAL
     Route: 048
     Dates: start: 20030201, end: 20031026
  2. PREDNISONE [Concomitant]
  3. MECLIZINE [Concomitant]

REACTIONS (22)
  - AGITATION [None]
  - ARTHRALGIA [None]
  - DECREASED APPETITE [None]
  - DIARRHOEA [None]
  - DIZZINESS [None]
  - DYSGEUSIA [None]
  - FLUSHING [None]
  - HEART RATE INCREASED [None]
  - HYPERHIDROSIS [None]
  - HYPERTENSION [None]
  - LOSS OF CONSCIOUSNESS [None]
  - MIGRAINE [None]
  - MOUTH ULCERATION [None]
  - MUSCLE CRAMP [None]
  - ORAL PAIN [None]
  - PHOTOPSIA [None]
  - POLLAKIURIA [None]
  - SKIN ODOUR ABNORMAL [None]
  - TINNITUS [None]
  - TREMOR [None]
  - VASODILATION PROCEDURE [None]
  - WEIGHT DECREASED [None]
